FAERS Safety Report 8447539-X (Version None)
Quarter: 2012Q2

REPORT INFORMATION
  Report Type: 
  Country: None (occurrence: None)
  Receive Date: 20120612
  Receipt Date: 20120601
  Transmission Date: 20120825
  Serious: Yes (Hospitalization, Other)
  Sender: FDA-Public Use
  Company Number: 2012MA006857

PATIENT
  Age: 58 Year
  Sex: Male

DRUGS (4)
  1. LEUCOVORIN CALCIUM [Suspect]
     Indication: COLON CANCER
     Dosage: IV
     Route: 042
  2. PANITUMUMAB (NO PREF. NAME) [Suspect]
     Indication: COLON CANCER
     Dosage: IV
     Route: 042
  3. FLUOROURACIL [Suspect]
     Indication: COLON CANCER
     Dosage: IV
     Route: 042
  4. IRINOTECAN HYDROCHLORIDE [Suspect]
     Indication: COLON CANCER
     Dosage: IV
     Route: 042

REACTIONS (2)
  - BRONCHIECTASIS [None]
  - INTERSTITIAL LUNG DISEASE [None]
